FAERS Safety Report 5626509-0 (Version None)
Quarter: 2008Q1

REPORT INFORMATION
  Report Type: 
  Country: None (occurrence: None)
  Receive Date: 20080214
  Receipt Date: 20080208
  Transmission Date: 20080703
  Serious: Yes (Other)
  Sender: FDA-Public Use
  Company Number: DE-ASTRAZENECA-2008PK00303

PATIENT
  Sex: Male

DRUGS (1)
  1. FOSCAVIR [Suspect]
     Indication: MOLLUSCUM CONTAGIOSUM

REACTIONS (3)
  - NEPHROLITHIASIS [None]
  - PENILE ULCERATION [None]
  - RENAL IMPAIRMENT [None]
